FAERS Safety Report 6222113-4 (Version None)
Quarter: 2009Q2

REPORT INFORMATION
  Report Type: 
  Country: None (occurrence: None)
  Receive Date: 20090608
  Receipt Date: 20090608
  Transmission Date: 20091009
  Serious: Yes (Hospitalization, Other)
  Sender: FDA-Public Use
  Company Number: None

PATIENT
  Age: 67 Year
  Sex: Female
  Weight: 74.3899 kg

DRUGS (1)
  1. CIPROFLOXACIN HCL [Suspect]
     Indication: URINARY TRACT INFECTION
     Dosage: 40 PILLS 05-20 08-20
     Dates: start: 20080601, end: 20080601

REACTIONS (14)
  - ACTIVITIES OF DAILY LIVING IMPAIRED [None]
  - BALANCE DISORDER [None]
  - BURNING SENSATION [None]
  - CELLULITIS [None]
  - DRY MOUTH [None]
  - HEADACHE [None]
  - IMPAIRED DRIVING ABILITY [None]
  - MALAISE [None]
  - PAIN [None]
  - PARAESTHESIA [None]
  - SWELLING FACE [None]
  - TENDONITIS [None]
  - UNEVALUABLE EVENT [None]
  - URTICARIA [None]
